FAERS Safety Report 14346365 (Version 1)
Quarter: 2018Q1

REPORT INFORMATION
  Report Type: Spontaneous
  Country: JP (occurrence: JP)
  Receive Date: 20180103
  Receipt Date: 20180103
  Transmission Date: 20180509
  Serious: Yes (Other)
  Sender: FDA-Public Use
  Company Number: JP-PFIZER INC-2018000677

PATIENT
  Age: 6 Decade
  Sex: Female

DRUGS (2)
  1. MEROPEN [Suspect]
     Active Substance: MEROPENEM
     Indication: FEBRILE NEUTROPENIA
  2. MEROPEN [Suspect]
     Active Substance: MEROPENEM
     Indication: PRIMARY MYELOFIBROSIS
     Dosage: 1.5 G, DAILY
     Route: 041

REACTIONS (1)
  - Altered state of consciousness [Not Recovered/Not Resolved]

NARRATIVE: CASE EVENT DATE: 201711
